FAERS Safety Report 5456965-2 (Version None)
Quarter: 2007Q3

REPORT INFORMATION
  Report Type: 
  Country: None (occurrence: None)
  Receive Date: 20070917
  Receipt Date: 20070917
  Transmission Date: 20080115
  Serious: Yes (Disabling)
  Sender: FDA-Public Use
  Company Number: None

PATIENT
  Age: 76 Year
  Sex: Female
  Weight: 74.8435 kg

DRUGS (1)
  1. FOSAMAX [Suspect]
     Indication: OSTEOPOROSIS
     Dosage: 1 TABLET 1 TABLET WEEKLY
     Dates: start: 20060820

REACTIONS (8)
  - ABDOMINAL PAIN UPPER [None]
  - BALANCE DISORDER [None]
  - DEAFNESS UNILATERAL [None]
  - HEADACHE [None]
  - HYPERSOMNIA [None]
  - PHARYNGOLARYNGEAL PAIN [None]
  - TINNITUS [None]
  - VOMITING [None]
